FAERS Safety Report 25537429 (Version 1)
Quarter: 2025Q3

REPORT INFORMATION
  Report Type: Report from Study
  Country: CA (occurrence: CA)
  Receive Date: 20250710
  Receipt Date: 20250710
  Transmission Date: 20251020
  Serious: Yes (Death, Hospitalization)
  Sender: IPSEN BIOPHARMACEUTICALS, INC.
  Company Number: CA-IPSEN Group, Research and Development-2025-13555

PATIENT
  Age: 69 Year
  Sex: Male

DRUGS (12)
  1. LANREOTIDE ACETATE [Suspect]
     Active Substance: LANREOTIDE ACETATE
     Indication: Acromegaly
     Dosage: DEEP
     Dates: start: 20250204
  2. HYDREA [Concomitant]
     Active Substance: HYDROXYUREA
  3. FOLIC ACID [Concomitant]
     Active Substance: FOLIC ACID
  4. VITAMIN B12 [Concomitant]
     Active Substance: CYANOCOBALAMIN
  5. TRAMADOL [Concomitant]
     Active Substance: TRAMADOL
  6. MIDAMOR [Concomitant]
     Active Substance: AMILORIDE HYDROCHLORIDE
  7. METFORMIN [Concomitant]
     Active Substance: METFORMIN HYDROCHLORIDE
  8. INSULIN NOS [Concomitant]
     Active Substance: INSULIN NOS
  9. POLYETHYLENE GLYCOL 3350 [Concomitant]
     Active Substance: POLYETHYLENE GLYCOL 3350
  10. SENNOSIDES A AND B [Concomitant]
     Active Substance: SENNOSIDES A AND B
  11. MOMETASONE [Concomitant]
     Active Substance: MOMETASONE
  12. DULOXETINE [Concomitant]
     Active Substance: DULOXETINE

REACTIONS (2)
  - Death [Fatal]
  - Hospitalisation [Unknown]

NARRATIVE: CASE EVENT DATE: 20250604
